FAERS Safety Report 4763256-1 (Version None)
Quarter: 2005Q3

REPORT INFORMATION
  Report Type: 
  Country: None (occurrence: None)
  Receive Date: 20050902
  Receipt Date: 20050824
  Transmission Date: 20060218
  Serious: Yes (Life-Threatening, Hospitalization)
  Sender: FDA-Public Use
  Company Number: TCI2005A03586

PATIENT
  Age: 67 Year
  Sex: Female

DRUGS (6)
  1. TCV-116 (CANDESARTAN CILEXETIL) [Suspect]
     Indication: DIABETIC NEPHROPATHY
     Dosage: SEE IMAGE
     Route: 048
     Dates: start: 20050328, end: 20050424
  2. TCV-116 (CANDESARTAN CILEXETIL) [Suspect]
     Indication: DIABETIC NEPHROPATHY
     Dosage: SEE IMAGE
     Route: 048
     Dates: start: 20050425, end: 20050522
  3. TCV-116 (CANDESARTAN CILEXETIL) [Suspect]
     Indication: DIABETIC NEPHROPATHY
     Dosage: SEE IMAGE
     Route: 048
     Dates: start: 20050523, end: 20050813
  4. ACTOS [Suspect]
     Indication: DIABETES MELLITUS NON-INSULIN-DEPENDENT
     Dosage: 30 MG (30 MG, 1 IN 1 D) PER ORAL
     Route: 048
     Dates: start: 20010219, end: 20050813
  5. EUGLUCON (GLIBENCLAMIDE) [Concomitant]
  6. HYPOCA (BARNIDIPINE) [Concomitant]

REACTIONS (14)
  - ATRIAL FIBRILLATION [None]
  - ATRIAL FLUTTER [None]
  - BRADYCARDIA [None]
  - CARDIAC ARREST [None]
  - CARDIAC FAILURE ACUTE [None]
  - EXTRASYSTOLES [None]
  - HYPERTENSIVE EMERGENCY [None]
  - LUNG DISORDER [None]
  - MYOCARDIAL INFARCTION [None]
  - NODAL RHYTHM [None]
  - PNEUMONIA [None]
  - PULMONARY OEDEMA [None]
  - PYREXIA [None]
  - RESPIRATORY ARREST [None]
